FAERS Safety Report 9025323 (Version 1)
Quarter: 2013Q1

REPORT INFORMATION
  Report Type: Spontaneous
  Country: US (occurrence: US)
  Receive Date: 20130122
  Receipt Date: 20130122
  Transmission Date: 20140127
  Serious: Yes (Hospitalization, Other)
  Sender: FDA-Public Use
  Company Number: US-009507513-1301USA007489

PATIENT
  Sex: 0

DRUGS (6)
  1. PRINIVIL [Suspect]
     Indication: HYPERTENSION
     Dosage: 20 MG, BID
     Route: 048
     Dates: start: 20100120, end: 20120826
  2. ALLOPURINOL [Concomitant]
     Dosage: 300 MG, QD
  3. CLONIDINE [Suspect]
     Dosage: 0.2 MG, TID
  4. ASPIRIN [Concomitant]
     Dosage: 81 MG, QD
  5. MAGNESIUM OXIDE [Concomitant]
     Dosage: 400 MG, TID
  6. METOPROLOL [Concomitant]
     Dosage: 100 MG, BID

REACTIONS (6)
  - Acute respiratory failure [Recovered/Resolved]
  - Angioedema [Unknown]
  - Sinusitis [Unknown]
  - Diabetes mellitus [Unknown]
  - Asthenia [Unknown]
  - Staphylococcal infection [Unknown]
